FAERS Safety Report 12499119 (Version 2)
Quarter: 2016Q4

REPORT INFORMATION
  Report Type: Spontaneous
  Country: US (occurrence: US)
  Receive Date: 20160627
  Receipt Date: 20161116
  Transmission Date: 20170207
  Serious: Yes (Other)
  Sender: FDA-Public Use
  Company Number: US-GLAXOSMITHKLINE-US2016090505

PATIENT
  Age: 72 Year
  Sex: Female

DRUGS (1)
  1. EXCEDRIN EXTRA STRENGTH [Suspect]
     Active Substance: ACETAMINOPHEN\ASPIRIN\CAFFEINE
     Indication: SINUS PAIN
     Dosage: UNK, 2 CAPLETS AS NEEDED
     Route: 048

REACTIONS (7)
  - Facial bones fracture [Recovered/Resolved]
  - Back pain [Recovered/Resolved]
  - Foreign body [Recovered/Resolved]
  - Road traffic accident [Recovered/Resolved]
  - Wrong technique in product usage process [Unknown]
  - Off label use [Unknown]
  - Sinus pain [Unknown]
